FAERS Safety Report 8409932-0 (Version None)
Quarter: 2012Q2

REPORT INFORMATION
  Report Type: 
  Country: None (occurrence: None)
  Receive Date: 20120605
  Receipt Date: 20120601
  Transmission Date: 20120825
  Serious: Yes (Other)
  Sender: FDA-Public Use
  Company Number: US-PFIZER INC-2012121466

PATIENT
  Sex: Female
  Weight: 63.492 kg

DRUGS (4)
  1. TOVIAZ [Suspect]
     Dosage: 8 MG, DAILY
  2. TOVIAZ [Suspect]
     Indication: HYPERTONIC BLADDER
     Dosage: 4 MG, DAILY
     Route: 048
     Dates: start: 20100101
  3. DEPAKOTE [Concomitant]
     Indication: CONVULSION
     Dosage: UNK
  4. INSULIN [Concomitant]
     Dosage: UNK

REACTIONS (1)
  - URINARY TRACT INFECTION [None]
